FAERS Safety Report 4867794-2 (Version None)
Quarter: 2005Q4

REPORT INFORMATION
  Report Type: 
  Country: None (occurrence: None)
  Receive Date: 20051223
  Receipt Date: 20051223
  Transmission Date: 20060501
  Serious: Yes (Hospitalization, Other)
  Sender: FDA-Public Use
  Company Number: None

PATIENT
  Sex: Female
  Weight: 48 kg

DRUGS (8)
  1. VINCRISTINE [Suspect]
     Indication: ACUTE LYMPHOCYTIC LEUKAEMIA
     Dosage: SEE IMAGE
     Route: 042
     Dates: start: 20051114
  2. METHOTREXATE [Suspect]
     Dosage: SEE IMAGE
     Route: 042
     Dates: start: 20051204
  3. METHOTREXATE [Suspect]
     Dosage: SEE IMAGE
     Route: 037
     Dates: start: 20051204
  4. METHOTREXATE [Suspect]
     Dosage: SEE IMAGE
     Route: 048
     Dates: start: 20051204
  5. MERCAPTOPURINE [Suspect]
     Dosage: SEE IMAGE
     Route: 048
     Dates: start: 20051205
  6. LEUCOVORIN CALCIUM [Suspect]
     Dosage: SEE IMAGE
     Route: 042
  7. LEUCOVORIN [Suspect]
     Dosage: SEE IMAGE
     Route: 048
  8. COTRIMOXAZOLE DS [Suspect]
     Dosage: SEE IMAGE
     Route: 048

REACTIONS (2)
  - ENDOCARDITIS BACTERIAL [None]
  - STAPHYLOCOCCAL INFECTION [None]
